FAERS Safety Report 11966091 (Version 4)
Quarter: 2016Q1

REPORT INFORMATION
  Report Type: Spontaneous
  Country: US (occurrence: US)
  Receive Date: 20160127
  Receipt Date: 20160309
  Transmission Date: 20160526
  Serious: Yes (Other)
  Sender: FDA-Public Use
  Company Number: US-ASTELLAS-2016US002775

PATIENT
  Age: 88 Year
  Sex: Male

DRUGS (3)
  1. XTANDI [Suspect]
     Active Substance: ENZALUTAMIDE
     Indication: PROSTATE CANCER
     Route: 048
     Dates: start: 20150925
  2. XTANDI [Suspect]
     Active Substance: ENZALUTAMIDE
     Indication: METASTASES TO BONE
     Route: 065
  3. XTANDI [Suspect]
     Active Substance: ENZALUTAMIDE
     Dosage: 80 MG, UNKNOWN FREQ.
     Route: 065

REACTIONS (5)
  - Dizziness [Recovering/Resolving]
  - Balance disorder [Recovering/Resolving]
  - Balance disorder [Unknown]
  - Vertigo [Unknown]
  - Fall [Unknown]

NARRATIVE: CASE EVENT DATE: 201601
